FAERS Safety Report 5724883-8 (Version None)
Quarter: 2008Q2

REPORT INFORMATION
  Report Type: 
  Country: None (occurrence: None)
  Receive Date: 20080429
  Receipt Date: 20080421
  Transmission Date: 20081010
  Serious: Yes (Other)
  Sender: FDA-Public Use
  Company Number: 2008SP007523

PATIENT
  Age: 68 Year
  Sex: Female

DRUGS (4)
  1. PEG-INTRON [Suspect]
     Indication: DRUG USE FOR UNKNOWN INDICATION
     Dosage: 80 MCG; SC
     Route: 058
  2. IRBESARTAN [Concomitant]
  3. PANTOPRAZOLE SODIUM [Concomitant]
  4. HYDROCHLOROTHIAZIDE [Concomitant]

REACTIONS (4)
  - CONVULSION [None]
  - FEELING COLD [None]
  - PYREXIA [None]
  - TREMOR [None]
